FAERS Safety Report 14585197 (Version 1)
Quarter: 2018Q1

REPORT INFORMATION
  Report Type: Spontaneous
  Country: IT (occurrence: IT)
  Receive Date: 20180301
  Receipt Date: 20180301
  Transmission Date: 20180509
  Serious: Yes (Hospitalization)
  Sender: FDA-Public Use
  Company Number: IT-FRESENIUS KABI-FK201802350

PATIENT
  Sex: Female

DRUGS (2)
  1. PARACETAMOL (MANUFACTURER UNKNOWN) [Suspect]
     Active Substance: ACETAMINOPHEN
     Indication: PRODUCT USED FOR UNKNOWN INDICATION
     Route: 064
  2. POLYPHENOLS, TEA [Suspect]
     Active Substance: POLYPHENOLS, TEA
     Indication: PRODUCT USED FOR UNKNOWN INDICATION
     Route: 064

REACTIONS (9)
  - Foetal exposure during pregnancy [Unknown]
  - Cardiomyopathy [Unknown]
  - Drug interaction [Unknown]
  - Cardiac murmur [Unknown]
  - Right ventricular dysfunction [Unknown]
  - Pulmonary artery stenosis [Unknown]
  - Neonatal respiratory distress syndrome [Unknown]
  - Ductus arteriosus premature closure [Unknown]
  - Aspartate aminotransferase increased [Unknown]
